FAERS Safety Report 10085967 (Version 1)
Quarter: 2014Q2

REPORT INFORMATION
  Report Type: Spontaneous
  Country: US (occurrence: None)
  Receive Date: 20140415
  Receipt Date: 20140415
  Transmission Date: 20141212
  Serious: Yes (Hospitalization)
  Sender: FDA-Public Use
  Company Number: 08-AUR-03232

PATIENT
  Age: 84 Year
  Sex: Female

DRUGS (5)
  1. PAROXETINE (PAROXETINE) [Suspect]
     Indication: DEPRESSION
  2. VERAPAMIL (VERAPAMIL) [Concomitant]
  3. TICLOPIDINE (TICLOPIDINE) [Concomitant]
  4. SPIRONOLACTONE (SPIRONOLACTONE) [Concomitant]
  5. NIFEDIPINE (NIFEDIPINE) (NIFEDIPINE) [Suspect]

REACTIONS (5)
  - Hepatitis [None]
  - Renal failure [None]
  - White blood cell count increased [None]
  - Hepatic encephalopathy [None]
  - International normalised ratio increased [None]
